FAERS Safety Report 5507620-1 (Version None)
Quarter: 2007Q4

REPORT INFORMATION
  Report Type: 
  Country: None (occurrence: None)
  Receive Date: 20071106
  Receipt Date: 20071026
  Transmission Date: 20080405
  Serious: Yes (Life-Threatening)
  Sender: FDA-Public Use
  Company Number: JP-ASTRAZENECA-2007AP06900

PATIENT
  Age: 14067 Day
  Sex: Female

DRUGS (7)
  1. SEROQUEL [Suspect]
     Indication: INSOMNIA
     Dosage: 1 TABLET DAILY
     Route: 048
     Dates: end: 20071010
  2. SEROQUEL [Suspect]
     Dosage: 14 TABLETS TAKEN
     Route: 048
     Dates: start: 20071010, end: 20071010
  3. AMOBAN [Suspect]
     Indication: INSOMNIA
     Dosage: 1 TABLET DAILY
     Route: 048
  4. AMOBAN [Suspect]
     Dosage: 14 TABLETS TAKEN
     Route: 048
     Dates: start: 20071010, end: 20071010
  5. ROHYPNOL [Suspect]
     Indication: INSOMNIA
     Dosage: 1 TABLET DAILY
     Route: 048
  6. ROHYPNOL [Suspect]
     Dosage: 14 TABLETS TAKEN
     Route: 048
     Dates: start: 20071010, end: 20071010
  7. CONSTAN [Concomitant]
     Indication: ANXIETY DISORDER
     Route: 048

REACTIONS (2)
  - DRUG TOXICITY [None]
  - INTENTIONAL OVERDOSE [None]
